FAERS Safety Report 5903433-7 (Version None)
Quarter: 2008Q3

REPORT INFORMATION
  Report Type: 
  Country: None (occurrence: None)
  Receive Date: 20080926
  Receipt Date: 20080917
  Transmission Date: 20090109
  Serious: Yes (Other)
  Sender: FDA-Public Use
  Company Number: CHPA2008US15985

PATIENT
  Sex: Female

DRUGS (1)
  1. BENEFIBER W/ WHEAT DEXTRIN (NCH) (WHEAT DEXTRIN) POWDER [Suspect]
     Indication: MEDICAL DIET
     Dosage: 2 TSP, TID, ORAL
     Route: 048
     Dates: start: 20080701, end: 20080916

REACTIONS (4)
  - ABDOMINAL DISTENSION [None]
  - FUNGAL INFECTION [None]
  - STOMACH DISCOMFORT [None]
  - STOMATITIS [None]
